FAERS Safety Report 16419129 (Version 2)
Quarter: 2019Q3

REPORT INFORMATION
  Report Type: Report from Study
  Country: CA (occurrence: CA)
  Receive Date: 20190612
  Receipt Date: 20190708
  Transmission Date: 20191004
  Serious: Yes (Life-Threatening, Hospitalization, Other)
  Sender: FDA-Public Use
  Company Number: CA-ROCHE-1598659

PATIENT
  Age: 87 Year
  Sex: Female

DRUGS (19)
  1. RANIBIZUMAB. [Suspect]
     Active Substance: RANIBIZUMAB
     Indication: AGE-RELATED MACULAR DEGENERATION
     Route: 050
     Dates: start: 20140127
  2. AMOXICLAV [Concomitant]
     Active Substance: AMOXICILLIN\CLAVULANATE POTASSIUM
  3. APO-DOXAZOSIN [Concomitant]
     Active Substance: DOXAZOSIN MESYLATE
  4. RANIBIZUMAB. [Suspect]
     Active Substance: RANIBIZUMAB
     Route: 050
     Dates: start: 20141017
  5. APO-OMEPRAZOLE [Concomitant]
     Active Substance: OMEPRAZOLE
  6. RANIBIZUMAB. [Suspect]
     Active Substance: RANIBIZUMAB
     Route: 050
     Dates: start: 20141028
  7. APO-FUROSEMIDE [Concomitant]
     Active Substance: FUROSEMIDE
  8. RANIBIZUMAB. [Suspect]
     Active Substance: RANIBIZUMAB
     Indication: AGE-RELATED MACULAR DEGENERATION
     Route: 050
     Dates: start: 20140925, end: 20140925
  9. APO-TEMAZEPAM [Concomitant]
     Active Substance: TEMAZEPAM
  10. NOVO-LORAZEM [Concomitant]
  11. AMLODIPINE [Concomitant]
     Active Substance: AMLODIPINE BESYLATE
  12. RANIBIZUMAB. [Suspect]
     Active Substance: RANIBIZUMAB
     Route: 050
     Dates: start: 20141209
  13. ARTIFICIAL TEARS [POLYVINYL ALCOHOL] [Concomitant]
     Indication: PRODUCT USED FOR UNKNOWN INDICATION
     Route: 065
  14. CARBAMAZEPINE. [Concomitant]
     Active Substance: CARBAMAZEPINE
  15. RANIBIZUMAB. [Suspect]
     Active Substance: RANIBIZUMAB
     Route: 050
     Dates: start: 20150525, end: 20150525
  16. APO ROSUVASTATIN [Concomitant]
     Active Substance: ROSUVASTATIN CALCIUM
  17. VALSARTAN. [Concomitant]
     Active Substance: VALSARTAN
  18. ATENOLOL. [Concomitant]
     Active Substance: ATENOLOL
  19. POLYVINYL ALCOHOL;POVIDONE [Concomitant]
     Dosage: ARTIFICIAL TEARS
     Route: 065

REACTIONS (13)
  - Dysphagia [Unknown]
  - Volvulus [Recovered/Resolved]
  - Coeliac disease [Unknown]
  - Asthenia [Unknown]
  - Eye pain [Not Recovered/Not Resolved]
  - Intestinal obstruction [Recovering/Resolving]
  - Decreased appetite [Recovered/Resolved]
  - Inappropriate schedule of product administration [Unknown]
  - Seizure [Recovered/Resolved]
  - Fall [Unknown]
  - Wrist fracture [Recovered/Resolved]
  - Localised infection [Recovered/Resolved]
  - Dry eye [Not Recovered/Not Resolved]

NARRATIVE: CASE EVENT DATE: 20141009
